FAERS Safety Report 6622055-6 (Version None)
Quarter: 2010Q1

REPORT INFORMATION
  Report Type: 
  Country: None (occurrence: None)
  Receive Date: 20100223
  Receipt Date: 20091023
  Transmission Date: 20100710
  Serious: No
  Sender: FDA-Public Use
  Company Number: 8053686

PATIENT
  Sex: Female
  Weight: 102 kg

DRUGS (7)
  1. CERTOLIZUMAB PEGOL (UCB, INC) [Suspect]
     Indication: CROHN'S DISEASE
     Dosage: (SUBCUTANEOUS)
     Route: 058
     Dates: start: 20090116
  2. VITAMIN B-12 [Concomitant]
  3. IRON [Concomitant]
  4. SOMA [Concomitant]
  5. ULTRAM [Concomitant]
  6. ACIPHEX [Concomitant]
  7. AMBIEN [Concomitant]

REACTIONS (4)
  - FATIGUE [None]
  - INJECTION SITE REACTION [None]
  - MENSTRUAL DISORDER [None]
  - PRURITUS [None]
